FAERS Safety Report 7961550 (Version 3)
Quarter: 2013Q4

REPORT INFORMATION
  Report Type: Report from Study
  Country: BG (occurrence: BG)
  Receive Date: 20110526
  Receipt Date: 20131023
  Transmission Date: 20140711
  Serious: Yes (Hospitalization)
  Sender: FDA-Public Use
  Company Number: BG-US-EMD SERONO, INC.-7024502

PATIENT
  Age: 27 Year
  Sex: Female

DRUGS (1)
  1. REBIF [Suspect]
     Indication: MULTIPLE SCLEROSIS
     Dates: end: 20101007

REACTIONS (3)
  - Abortion missed [Recovered/Resolved]
  - Pregnancy [Recovered/Resolved]
  - Maternal exposure timing unspecified [Recovered/Resolved]
